FAERS Safety Report 5482153-X (Version None)
Quarter: 2007Q4

REPORT INFORMATION
  Report Type: 
  Country: None (occurrence: None)
  Receive Date: 20071005
  Receipt Date: 20070920
  Transmission Date: 20080405
  Serious: Yes (Other)
  Sender: FDA-Public Use
  Company Number: GXKR2007NZ08234

PATIENT
  Age: 67 Year
  Sex: Female

DRUGS (1)
  1. METRONIDAZOLE [Suspect]
     Indication: PNEUMATOSIS INTESTINALIS
     Dosage: 400 MG, TID
     Dates: start: 20051101

REACTIONS (9)
  - COLOUR VISION TESTS ABNORMAL [None]
  - GAIT DISTURBANCE [None]
  - MUSCULAR WEAKNESS [None]
  - NO THERAPEUTIC RESPONSE [None]
  - OPTIC ATROPHY [None]
  - OPTIC NEUROPATHY [None]
  - PAIN IN EXTREMITY [None]
  - PERIPHERAL SENSORY NEUROPATHY [None]
  - VISUAL ACUITY REDUCED [None]
